FAERS Safety Report 9754503 (Version 1)
Quarter: 2013Q4

REPORT INFORMATION
  Report Type: Spontaneous
  Country: US (occurrence: US)
  Receive Date: 20131213
  Receipt Date: 20131213
  Transmission Date: 20140711
  Serious: Yes (Other)
  Sender: FDA-Public Use
  Company Number: US-TEVA-403976USA

PATIENT
  Age: 26 Year
  Sex: Female
  Weight: 80.81 kg

DRUGS (1)
  1. PARAGARD 380A [Suspect]
     Indication: CONTRACEPTION
     Dates: start: 201105, end: 20130506

REACTIONS (5)
  - Pregnancy with contraceptive device [Unknown]
  - Drug ineffective [Not Recovered/Not Resolved]
  - Metrorrhagia [Recovered/Resolved]
  - Pelvic pain [Recovered/Resolved]
  - Amenorrhoea [Not Recovered/Not Resolved]
